FAERS Safety Report 10841022 (Version 1)
Quarter: 2015Q1

REPORT INFORMATION
  Report Type: Report from Study
  Country: US (occurrence: US)
  Receive Date: 20150220
  Receipt Date: 20150220
  Transmission Date: 20150721
  Serious: No
  Sender: FDA-Public Use
  Company Number: US-ABBVIE-14P-163-1238611-00

PATIENT
  Age: 60 Year
  Sex: Male

DRUGS (9)
  1. HUMIRA [Suspect]
     Active Substance: ADALIMUMAB
     Dates: start: 20140602
  2. CALCIUM [Concomitant]
     Active Substance: CALCIUM
     Indication: PRODUCT USED FOR UNKNOWN INDICATION
  3. ANTIDEPRESSANTS [Concomitant]
     Active Substance: UNSPECIFIED INGREDIENT
     Indication: PRODUCT USED FOR UNKNOWN INDICATION
  4. ACID REFLUX PILL [Concomitant]
     Active Substance: UNSPECIFIED INGREDIENT
     Indication: PRODUCT USED FOR UNKNOWN INDICATION
  5. HIGH CHOLESTEROL PILL [Concomitant]
     Indication: PRODUCT USED FOR UNKNOWN INDICATION
  6. HIGH BLOOD PRESSURE PILL [Concomitant]
     Active Substance: UNSPECIFIED INGREDIENT
     Indication: PRODUCT USED FOR UNKNOWN INDICATION
  7. HUMIRA [Suspect]
     Active Substance: ADALIMUMAB
     Indication: PSORIASIS
     Dates: start: 20140509, end: 20140509
  8. HUMIRA [Suspect]
     Active Substance: ADALIMUMAB
     Dates: start: 20140519, end: 20140519
  9. IBUPROFEN. [Concomitant]
     Active Substance: IBUPROFEN
     Indication: PRODUCT USED FOR UNKNOWN INDICATION
     Dosage: AS NEEDED

REACTIONS (2)
  - Back pain [Not Recovered/Not Resolved]
  - Injection site pain [Recovered/Resolved]

NARRATIVE: CASE EVENT DATE: 20140509
